FAERS Safety Report 12159353 (Version 3)
Quarter: 2016Q2

REPORT INFORMATION
  Report Type: Spontaneous
  Country: US (occurrence: US)
  Receive Date: 20160308
  Receipt Date: 20160615
  Transmission Date: 20160815
  Serious: No
  Sender: FDA-Public Use
  Company Number: US-PFIZER INC-2016139754

PATIENT
  Age: 46 Year
  Sex: Female

DRUGS (3)
  1. BUPROPION XL [Concomitant]
     Active Substance: BUPROPION
     Indication: DEPRESSION
     Dosage: 150 MG, 1X/DAY (AM)
     Dates: start: 201506
  2. GABAPENTIN. [Suspect]
     Active Substance: GABAPENTIN
     Indication: PAIN
  3. GABAPENTIN. [Suspect]
     Active Substance: GABAPENTIN
     Indication: FIBROMYALGIA
     Dosage: UNK, 1X/DAY (300-600 MG US AT BEDTIME) (300MG HS TITRATED UPTO 600MG HS)
     Route: 048
     Dates: start: 20151124

REACTIONS (7)
  - Sedation [Recovered/Resolved]
  - Amnesia [Recovered/Resolved]
  - Drug hypersensitivity [Unknown]
  - Mental disorder [Recovered/Resolved]
  - Drug ineffective [Recovered/Resolved]
  - Somnolence [Recovered/Resolved]
  - Product use issue [Unknown]

NARRATIVE: CASE EVENT DATE: 201511
